FAERS Safety Report 13823959 (Version 5)
Quarter: 2018Q2

REPORT INFORMATION
  Report Type: Report from Study
  Country: None (occurrence: US)
  Receive Date: 20170802
  Receipt Date: 20180420
  Transmission Date: 20180711
  Serious: Yes (Hospitalization, Other)
  Sender: FDA-Public Use
  Company Number: US-ABBVIE-17K-163-1947260-00

PATIENT
  Age: 51 Year
  Sex: Female

DRUGS (5)
  1. HUMIRA [Suspect]
     Active Substance: ADALIMUMAB
     Indication: PSORIASIS
     Route: 058
     Dates: start: 2012, end: 201612
  2. HUMIRA [Suspect]
     Active Substance: ADALIMUMAB
     Dosage: FROM DAY EIGHT
     Route: 058
     Dates: start: 20170411, end: 201707
  3. HUMIRA [Suspect]
     Active Substance: ADALIMUMAB
     Route: 058
     Dates: start: 20171210, end: 20171224
  4. HUMIRA [Suspect]
     Active Substance: ADALIMUMAB
     Dosage: DAY ONE
     Route: 058
     Dates: start: 20170404, end: 20170404
  5. HUMIRA [Suspect]
     Active Substance: ADALIMUMAB
     Route: 058
     Dates: start: 201801

REACTIONS (27)
  - Oesophageal ulcer haemorrhage [Unknown]
  - Helplessness [Recovered/Resolved]
  - Skin irritation [Unknown]
  - Fungal infection [Unknown]
  - Fungal skin infection [Unknown]
  - Emotional distress [Recovered/Resolved]
  - Hand-foot-and-mouth disease [Recovered/Resolved]
  - Chest pain [Unknown]
  - Psoriasis [Recovered/Resolved]
  - Psoriasis [Unknown]
  - Vomiting [Not Recovered/Not Resolved]
  - Ulcer [Unknown]
  - Frustration tolerance decreased [Recovered/Resolved]
  - Arthralgia [Unknown]
  - Headache [Not Recovered/Not Resolved]
  - General physical condition abnormal [Unknown]
  - Swelling [Unknown]
  - Oral herpes [Recovered/Resolved]
  - Psoriasis [Not Recovered/Not Resolved]
  - Contusion [Unknown]
  - Cough [Unknown]
  - Vaginal cyst [Unknown]
  - Gastrointestinal ulcer [Unknown]
  - Chills [Unknown]
  - Blister [Recovered/Resolved]
  - Abdominal distension [Unknown]
  - Dyspnoea [Unknown]

NARRATIVE: CASE EVENT DATE: 2017
